FAERS Safety Report 4635717-7 (Version None)
Quarter: 2005Q2

REPORT INFORMATION
  Report Type: 
  Country: None (occurrence: None)
  Receive Date: 20050414
  Receipt Date: 20050331
  Transmission Date: 20051028
  Serious: Yes (Hospitalization)
  Sender: FDA-Public Use
  Company Number: 2005AP02003

PATIENT
  Age: 76 Year
  Sex: Female
  Weight: 49 kg

DRUGS (7)
  1. IRESSA [Suspect]
     Indication: NON-SMALL CELL LUNG CANCER
     Dosage: 250 MG DAILY PO
     Route: 048
     Dates: start: 20041108
  2. ISODINE [Concomitant]
  3. SERASTAR [Concomitant]
  4. NO MATCH [Concomitant]
  5. GASMET [Concomitant]
  6. VITAEMEDIN [Concomitant]
  7. LENDORM [Concomitant]

REACTIONS (6)
  - CEREBRAL HAEMORRHAGE [None]
  - CONSTIPATION [None]
  - DRY SKIN [None]
  - HEADACHE [None]
  - HEMIANOPIA HOMONYMOUS [None]
  - VISUAL ACUITY REDUCED [None]
